FAERS Safety Report 5682788-5 (Version None)
Quarter: 2008Q1

REPORT INFORMATION
  Report Type: 
  Country: None (occurrence: None)
  Receive Date: 20080327
  Receipt Date: 20080318
  Transmission Date: 20080703
  Serious: Yes (Hospitalization, Other)
  Sender: FDA-Public Use
  Company Number: US-WYE-H02058508

PATIENT
  Sex: Female
  Weight: 79 kg

DRUGS (6)
  1. PREMARIN [Suspect]
     Indication: HORMONE REPLACEMENT THERAPY
     Dosage: UNKNOWN
     Route: 048
     Dates: start: 20021011, end: 20050503
  2. NORVASC [Concomitant]
     Indication: HYPERTENSION
     Route: 048
  3. COZAAR [Concomitant]
     Indication: HYPERTENSION
     Route: 048
  4. LIPITOR [Concomitant]
     Indication: HYPERLIPIDAEMIA
     Route: 048
  5. ZOLOFT [Concomitant]
     Indication: DEPRESSION
     Dosage: NOT PROVIDED
  6. GEODON [Concomitant]
     Indication: SCHIZOPHRENIA
     Dosage: NOT PROVIDED

REACTIONS (1)
  - BREAST CANCER METASTATIC [None]
